FAERS Safety Report 7371230-4 (Version None)
Quarter: 2011Q1

REPORT INFORMATION
  Report Type: 
  Country: None (occurrence: None)
  Receive Date: 20110321
  Receipt Date: 20110321
  Transmission Date: 20110831
  Serious: Yes (Other)
  Sender: FDA-Public Use
  Company Number: None

PATIENT
  Age: 66 Year
  Sex: Male
  Weight: 60 kg

DRUGS (5)
  1. DOCETAXEL [Suspect]
     Indication: HEAD AND NECK CANCER
     Dosage: 80 MG ONE TIME IV DRIP
     Route: 042
     Dates: start: 20110301, end: 20110301
  2. DOCETAXEL [Suspect]
     Indication: HEAD AND NECK CANCER
     Dosage: 10 MG ONE TIME IV DRIP
     Route: 042
     Dates: start: 20110301, end: 20110301
  3. ZOFRAN [Concomitant]
  4. VANCOMYCIN [Concomitant]
  5. DECADRON [Concomitant]

REACTIONS (3)
  - CHEST DISCOMFORT [None]
  - CHEST PAIN [None]
  - INFUSION RELATED REACTION [None]
